FAERS Safety Report 23479298 (Version 2)
Quarter: 2024Q1

REPORT INFORMATION
  Report Type: Spontaneous
  Country: ES (occurrence: ES)
  Receive Date: 20240205
  Receipt Date: 20240314
  Transmission Date: 20240409
  Serious: Yes (Other)
  Sender: FDA-Public Use
  Company Number: ES-ELI_LILLY_AND_COMPANY-ES202304006189

PATIENT
  Age: 54 Year
  Sex: Female

DRUGS (10)
  1. GABAPENTIN [Suspect]
     Active Substance: GABAPENTIN
     Indication: Lymph node pain
     Dosage: UNK
     Route: 065
  2. GABAPENTIN [Suspect]
     Active Substance: GABAPENTIN
     Indication: Pain in extremity
  3. GABAPENTIN [Suspect]
     Active Substance: GABAPENTIN
     Indication: Limb discomfort
  4. ABEMACICLIB [Suspect]
     Active Substance: ABEMACICLIB
     Indication: Breast cancer metastatic
     Dosage: 300 MILLIGRAM, ONCE A DAY (150 MG, BID)
     Route: 048
  5. ABEMACICLIB [Suspect]
     Active Substance: ABEMACICLIB
     Dosage: 100 MILLIGRAM
     Route: 048
  6. ABEMACICLIB [Suspect]
     Active Substance: ABEMACICLIB
     Dosage: 300 MILLIGRAM, ONCE A DAY (150 MG, BID (WITH BREAKFAST AND DINNER))
     Route: 048
     Dates: start: 20230405
  7. ABEMACICLIB [Suspect]
     Active Substance: ABEMACICLIB
     Dosage: 100 MILLIGRAM
     Route: 048
     Dates: start: 20230913
  8. ANASTROZOLE [Concomitant]
     Active Substance: ANASTROZOLE
     Indication: Breast cancer metastatic
     Dosage: UNK
     Route: 065
  9. CHOLECALCIFEROL [Concomitant]
     Active Substance: CHOLECALCIFEROL
     Indication: Product used for unknown indication
     Dosage: UNK
     Route: 065
  10. ACETAMINOPHEN\TRAMADOL [Concomitant]
     Active Substance: ACETAMINOPHEN\TRAMADOL
     Indication: Product used for unknown indication
     Dosage: UNK
     Route: 065
     Dates: start: 20230606

REACTIONS (49)
  - Malignant neoplasm progression [Recovering/Resolving]
  - Asthenia [Recovering/Resolving]
  - Arthralgia [Recovering/Resolving]
  - Abdominal discomfort [Recovered/Resolved]
  - Abdominal pain [Recovered/Resolved]
  - Anaemia [Recovering/Resolving]
  - Alopecia [Recovering/Resolving]
  - Chest pain [Recovering/Resolving]
  - Diarrhoea [Recovered/Resolved]
  - Decreased appetite [Recovering/Resolving]
  - Discomfort [Recovering/Resolving]
  - Dehydration [Unknown]
  - Discouragement [Recovered/Resolved]
  - Dyspareunia [Recovering/Resolving]
  - Flatulence [Recovering/Resolving]
  - Fatigue [Recovered/Resolved]
  - Gastrointestinal sounds abnormal [Recovering/Resolving]
  - General physical health deterioration [Recovering/Resolving]
  - Haemoglobin abnormal [Recovering/Resolving]
  - Hypotension [Recovering/Resolving]
  - Headache [Recovering/Resolving]
  - Hunger [Recovering/Resolving]
  - Insomnia [Recovering/Resolving]
  - Limb discomfort [Recovering/Resolving]
  - Muscle spasms [Recovered/Resolved]
  - Micturition frequency decreased [Recovering/Resolving]
  - Malaise [Recovering/Resolving]
  - Mobility decreased [Recovering/Resolving]
  - Neutrophil count abnormal [Recovering/Resolving]
  - Post procedural inflammation [Recovering/Resolving]
  - Postoperative wound infection [Recovering/Resolving]
  - Pruritus [Recovering/Resolving]
  - Pubic pain [Recovered/Resolved]
  - Pain in extremity [Recovering/Resolving]
  - Renal pain [Recovering/Resolving]
  - Red blood cell count abnormal [Unknown]
  - Sleep disorder due to general medical condition, insomnia type [Recovering/Resolving]
  - Skin discomfort [Recovering/Resolving]
  - Sleep disorder [Recovering/Resolving]
  - Tremor [Recovering/Resolving]
  - Tumour marker increased [Recovering/Resolving]
  - Vitamin B12 decreased [Recovered/Resolved]
  - Vitamin D decreased [Recovering/Resolving]
  - Lymph node pain [Recovering/Resolving]
  - White blood cell count abnormal [Recovering/Resolving]
  - Emotional distress [Not Recovered/Not Resolved]
  - Feeling abnormal [Recovered/Resolved]
  - Weight decreased [Recovering/Resolving]
  - Product dose omission issue [Unknown]

NARRATIVE: CASE EVENT DATE: 20230416
